FAERS Safety Report 5904244-9 (Version None)
Quarter: 2008Q3

REPORT INFORMATION
  Report Type: 
  Country: None (occurrence: None)
  Receive Date: 20080909
  Receipt Date: 20080320
  Transmission Date: 20090109
  Serious: Yes (Other)
  Sender: FDA-Public Use
  Company Number: 163-20785-08031360

PATIENT
  Sex: Male

DRUGS (2)
  1. THALOMID [Suspect]
     Indication: MULTIPLE MYELOMA
     Dosage: 150-300MG, DAILY, ORAL ; 100 MG, 1 IN 1 D, ORAL
     Route: 048
     Dates: start: 20010813, end: 20040101
  2. THALOMID [Suspect]
     Indication: MULTIPLE MYELOMA
     Dosage: 150-300MG, DAILY, ORAL ; 100 MG, 1 IN 1 D, ORAL
     Route: 048
     Dates: start: 20040121

REACTIONS (2)
  - HYPOAESTHESIA [None]
  - NEUROPATHY PERIPHERAL [None]
